FAERS Safety Report 7445076-2 (Version None)
Quarter: 2011Q2

REPORT INFORMATION
  Report Type: 
  Country: None (occurrence: None)
  Receive Date: 20110427
  Receipt Date: 20110427
  Transmission Date: 20111010
  Serious: Yes (Hospitalization)
  Sender: FDA-Public Use
  Company Number: None

PATIENT
  Sex: Female
  Weight: 83.0083 kg

DRUGS (2)
  1. FLUOROURACIL [Concomitant]
  2. XELODA [Suspect]
     Indication: COLORECTAL CANCER
     Dosage: XELODA 1500 MG BID PO
     Route: 048
     Dates: start: 20110411, end: 20110415

REACTIONS (2)
  - CHEST PAIN [None]
  - PULMONARY HAEMORRHAGE [None]
